FAERS Safety Report 13472475 (Version 1)
Quarter: 2017Q2

REPORT INFORMATION
  Report Type: Spontaneous
  Country: US (occurrence: US)
  Receive Date: 20170422
  Receipt Date: 20170422
  Transmission Date: 20170830
  Serious: Yes (Hospitalization)
  Sender: FDA-Public Use
  Company Number: None

PATIENT
  Age: 39 Year
  Sex: Female
  Weight: 65.25 kg

DRUGS (1)
  1. TRANSDERM V [Suspect]
     Active Substance: SCOPOLAMINE
     Indication: MOTION SICKNESS
     Dosage: ?          QUANTITY:2 PATCH(ES);?
     Route: 062

REACTIONS (4)
  - Somnolence [None]
  - Disorientation [None]
  - Dry mouth [None]
  - Seizure [None]

NARRATIVE: CASE EVENT DATE: 20160626
